FAERS Safety Report 7672645-7 (Version None)
Quarter: 2011Q3

REPORT INFORMATION
  Report Type: 
  Country: None (occurrence: None)
  Receive Date: 20110809
  Receipt Date: 20110802
  Transmission Date: 20111222
  Serious: Yes (Hospitalization, Congenital Anomaly, Other)
  Sender: FDA-Public Use
  Company Number: US-PFIZER INC-2011158554

PATIENT
  Sex: Female
  Weight: 2.45 kg

DRUGS (13)
  1. EFFEXOR XR [Suspect]
     Dosage: 75 MG, 2X/DAY
     Route: 064
     Dates: start: 20031229
  2. EFFEXOR XR [Suspect]
     Dosage: 75 MG, 2X/DAY
     Route: 064
     Dates: start: 20030727, end: 20030727
  3. EFFEXOR XR [Suspect]
     Dosage: 75 MG DAILY
     Route: 064
     Dates: end: 20030421
  4. EFFEXOR XR [Suspect]
     Dosage: 75 MG, 1X/DAY
     Route: 064
  5. ALBUTEROL SULFATE AUTOHALER [Concomitant]
     Dosage: INHALE 1-2 PUFF AS NEEDED
     Route: 064
     Dates: start: 20070125
  6. EFFEXOR XR [Suspect]
     Indication: ANXIETY
     Dosage: 75 MG, 2X/DAY
     Route: 064
     Dates: start: 20021201
  7. EFFEXOR XR [Suspect]
     Dosage: 112.5 MG, 2X/DAY
     Route: 064
     Dates: start: 20030728
  8. EFFEXOR XR [Suspect]
     Dosage: 75 MG DAILY
     Route: 064
     Dates: start: 20060502
  9. PRENATAL VITAMINS [Concomitant]
     Dosage: ONE TABLET DAILY
     Route: 064
     Dates: start: 20070326
  10. EFFEXOR XR [Suspect]
     Indication: MAJOR DEPRESSION
     Dosage: 37.5 MG, UNK
     Route: 064
     Dates: start: 20021204, end: 20021201
  11. EFFEXOR XR [Suspect]
     Dosage: 37.5 MG, 2X/DAY
     Route: 064
     Dates: start: 20030726, end: 20030726
  12. EFFEXOR XR [Suspect]
     Dosage: 37.5 MG, 1X/DAY
     Route: 064
  13. EFFEXOR XR [Suspect]
     Dosage: 150 MG, 1X/DAY
     Route: 064

REACTIONS (10)
  - TRICUSPID VALVE INCOMPETENCE [None]
  - VENTRICULAR SEPTAL DEFECT [None]
  - PATENT DUCTUS ARTERIOSUS [None]
  - UMBILICAL CORD AROUND NECK [None]
  - UMBILICAL CORD ABNORMALITY [None]
  - AORTIC VALVE INCOMPETENCE [None]
  - MATERNAL EXPOSURE DURING PREGNANCY [None]
  - FALLOT'S TETRALOGY [None]
  - ATRIAL SEPTAL DEFECT [None]
  - MITRAL VALVE INCOMPETENCE [None]
